FAERS Safety Report 15906186 (Version 2)
Quarter: 2019Q1

REPORT INFORMATION
  Report Type: Report from Study
  Country: US (occurrence: US)
  Receive Date: 20190204
  Receipt Date: 20190205
  Transmission Date: 20190417
  Serious: No
  Sender: FDA-Public Use
  Company Number: PHEH2019US003574

PATIENT
  Age: 75 Year
  Sex: Female

DRUGS (1)
  1. ENTRESTO [Suspect]
     Active Substance: SACUBITRIL\VALSARTAN
     Indication: CARDIAC FAILURE CONGESTIVE
     Dosage: 150 MG, BID ( 49/51 MG IN MORNING AND 24/26 MG IN EVENING)
     Route: 048
     Dates: start: 20181101

REACTIONS (4)
  - Fatigue [Recovering/Resolving]
  - Eye allergy [Unknown]
  - Hypersomnia [Unknown]
  - Eyelid ptosis [Unknown]

NARRATIVE: CASE EVENT DATE: 20190117
